FAERS Safety Report 9732576 (Version 2)
Quarter: 2014Q3

REPORT INFORMATION
  Report Type: Spontaneous
  Country: PT (occurrence: PT)
  Receive Date: 20131205
  Receipt Date: 20140722
  Transmission Date: 20150326
  Serious: Yes (Other)
  Sender: FDA-Public Use
  Company Number: PT-JNJFOC-20131200450

PATIENT
  Sex: Female

DRUGS (7)
  1. CALCIUM CARBONATE. [Concomitant]
     Active Substance: CALCIUM CARBONATE
     Route: 065
  2. CRESTOR [Concomitant]
     Active Substance: ROSUVASTATIN CALCIUM
     Route: 065
  3. TOPAMAX [Suspect]
     Active Substance: TOPIRAMATE
     Indication: HEADACHE
     Route: 048
     Dates: start: 20131122
  4. OMEPRAZOLE. [Concomitant]
     Active Substance: OMEPRAZOLE
     Route: 065
  5. TOPAMAX [Suspect]
     Active Substance: TOPIRAMATE
     Indication: HEADACHE
     Route: 048
  6. EUTIROX [Concomitant]
     Active Substance: LEVOTHYROXINE SODIUM
     Route: 065
  7. TAMOXIFEN [Concomitant]
     Active Substance: TAMOXIFEN
     Route: 065

REACTIONS (7)
  - Paraesthesia [Recovered/Resolved]
  - Vertigo [Not Recovered/Not Resolved]
  - Diarrhoea [Recovered/Resolved]
  - Muscle spasms [Recovered/Resolved]
  - Tachycardia [Recovered/Resolved]
  - Myalgia [Not Recovered/Not Resolved]
  - Insomnia [Recovered/Resolved]
